FAERS Safety Report 8845658 (Version 1)
Quarter: 2012Q4

REPORT INFORMATION
  Report Type: 
  Country: GB (occurrence: GB)
  Receive Date: 20121017
  Receipt Date: 20121017
  Transmission Date: 20130627
  Serious: Yes (Other)
  Sender: FDA-Public Use
  Company Number: GB-VERTEX PHARMACEUTICAL INC.-2012-021792

PATIENT
  Age: 36 Year
  Sex: Female

DRUGS (5)
  1. VX-950 [Suspect]
     Indication: HEPATITIS C
     Dosage: 750 mg, tid
     Route: 048
     Dates: start: 20120912
  2. PEG INTERFERON [Concomitant]
     Indication: HEPATITIS C
     Dosage: UNK, qw
     Route: 058
  3. PEG INTERFERON [Concomitant]
     Dosage: Dosage Form: Injection
     Route: 058
  4. RIBAVIRIN [Concomitant]
     Indication: HEPATITIS C
     Dosage: UNK UNK, bid
     Route: 048
  5. RIBAVIRIN [Concomitant]
     Dosage: Dosage Form: Tablets
     Route: 048

REACTIONS (5)
  - Blister [Not Recovered/Not Resolved]
  - Vomiting [Recovered/Resolved]
  - Headache [Not Recovered/Not Resolved]
  - Pruritus [Not Recovered/Not Resolved]
  - Nausea [Not Recovered/Not Resolved]
